FAERS Safety Report 6984329-9 (Version None)
Quarter: 2010Q3

REPORT INFORMATION
  Report Type: 
  Country: None (occurrence: None)
  Receive Date: 20100915
  Receipt Date: 20100730
  Transmission Date: 20110219
  Serious: Yes (Hospitalization)
  Sender: FDA-Public Use
  Company Number: US-BAYER-201010769NA

PATIENT
  Age: 52 Year
  Sex: Female
  Weight: 68 kg

DRUGS (8)
  1. YAZ [Suspect]
     Indication: HOT FLUSH
     Route: 048
     Dates: start: 20080916, end: 20090218
  2. DIOVAN [Concomitant]
     Dates: start: 20060101
  3. CEFADROXIL [Concomitant]
  4. HYDROCODONE BITARTRATE AND ACETAMINOPHEN [Concomitant]
  5. ALPRAZOLAM [Concomitant]
  6. PRILOSEC [Concomitant]
  7. ONE A DAY MVI [Concomitant]
  8. EXTRA STRENGTH TYLENOL [Concomitant]

REACTIONS (6)
  - DEEP VEIN THROMBOSIS [None]
  - MUSCLE SPASMS [None]
  - MUSCLE TIGHTNESS [None]
  - OEDEMA PERIPHERAL [None]
  - PAIN IN EXTREMITY [None]
  - PHLEBITIS [None]
